FAERS Safety Report 25823097 (Version 2)
Quarter: 2025Q3

REPORT INFORMATION
  Report Type: Spontaneous
  Country: EU (occurrence: EU)
  Receive Date: 20250919
  Receipt Date: 20250922
  Transmission Date: 20251020
  Serious: Yes (Other)
  Sender: BAUSCH AND LOMB
  Company Number: None

PATIENT
  Age: 16 Year
  Sex: Female
  Weight: 64 kg

DRUGS (3)
  1. HYDROCORTISONE BUTYRATE [Suspect]
     Active Substance: HYDROCORTISONE BUTYRATE
     Indication: Eczema
     Route: 003
     Dates: start: 20050101
  2. TRIAMCINOLONE ACETONIDE [Suspect]
     Active Substance: TRIAMCINOLONE ACETONIDE
     Indication: Eczema
     Dosage: THREE TIMES A WEEK; EVERY 2 DAY
     Route: 003
     Dates: start: 20050301, end: 20240212
  3. MOMETASONE [Suspect]
     Active Substance: MOMETASONE
     Indication: Eczema
     Route: 003
     Dates: start: 20230101

REACTIONS (6)
  - Topical steroid withdrawal reaction [Not Recovered/Not Resolved]
  - Eczema [Not Recovered/Not Resolved]
  - Mood swings [Not Recovered/Not Resolved]
  - Fatigue [Unknown]
  - Malaise [Unknown]
  - Drug ineffective [Unknown]
